FAERS Safety Report 5957654-8 (Version None)
Quarter: 2008Q4

REPORT INFORMATION
  Report Type: 
  Country: None (occurrence: None)
  Receive Date: 20081110
  Receipt Date: 20081029
  Transmission Date: 20090506
  Serious: Yes (Life-Threatening, Hospitalization)
  Sender: FDA-Public Use
  Company Number: WAES 0810USA05271

PATIENT
  Age: 71 Year
  Sex: Male
  Weight: 75.7507 kg

DRUGS (22)
  1. CAP VORINOSTAT 100 MG [Suspect]
     Indication: ACUTE MYELOID LEUKAEMIA
     Dosage: 400 MG/DAILY/PO
     Route: 048
     Dates: start: 20080913, end: 20080926
  2. INFUSION (FORM) DECITABINE 38 MG [Suspect]
     Indication: ACUTE MYELOID LEUKAEMIA
     Dosage: 38 MG/DAILY/IV
     Route: 042
     Dates: start: 20080908, end: 20080912
  3. ADVAIR HFA [Concomitant]
  4. COMPAZINE [Concomitant]
  5. DARVON [Concomitant]
  6. LASIX [Concomitant]
  7. LEVAQUIN [Concomitant]
  8. LOPRESSOR [Concomitant]
  9. SYNTHROID [Concomitant]
  10. VFEND [Concomitant]
  11. ZANTAC [Concomitant]
  12. ALLOPURINOL [Concomitant]
  13. ATROPINE (+) DIPHENHYDRAMINE HYD [Concomitant]
  14. CALCIUM (UNSPECIFIED) (+) VITAMI [Concomitant]
  15. COLCHICINE [Concomitant]
  16. DEXTROMETHORPHAN (+) GUAIFENESIN [Concomitant]
  17. DOCUSATE SODIUM (+) SENNA [Concomitant]
  18. LEVALBUTEROL HYDROCHLORIDE [Concomitant]
  19. MAGNESIUM (UNSPECIFIED) [Concomitant]
  20. PANTOPRAZOLE SODIUM [Concomitant]
  21. POTASSIUM (UNSPECIFIED) [Concomitant]
  22. TEMAZEPAM [Concomitant]

REACTIONS (8)
  - CARDIAC ARREST [None]
  - CHEST X-RAY ABNORMAL [None]
  - ELECTROCARDIOGRAM ABNORMAL [None]
  - ENDOCARDITIS [None]
  - FEBRILE NEUTROPENIA [None]
  - OEDEMA [None]
  - PNEUMONIA [None]
  - SEPSIS [None]
